FAERS Safety Report 23569082 (Version 1)
Quarter: 2024Q1

REPORT INFORMATION
  Report Type: Spontaneous
  Country: PL (occurrence: PL)
  Receive Date: 20240227
  Receipt Date: 20240227
  Transmission Date: 20240410
  Serious: Yes (Other)
  Sender: FDA-Public Use
  Company Number: PL-AMGEN-POLSP2024036323

PATIENT
  Age: 45 Year
  Sex: Male

DRUGS (11)
  1. VECTIBIX [Suspect]
     Active Substance: PANITUMUMAB
     Indication: Rectal cancer
     Dosage: UNK
     Route: 065
     Dates: start: 20230927, end: 2023
  2. VECTIBIX [Suspect]
     Active Substance: PANITUMUMAB
     Indication: Colorectal cancer
     Dosage: UNK
     Route: 065
     Dates: start: 20231011, end: 2023
  3. VECTIBIX [Suspect]
     Active Substance: PANITUMUMAB
     Dosage: UNK
     Route: 065
     Dates: start: 202311
  4. LEUCOVORIN [Suspect]
     Active Substance: LEUCOVORIN\LEUCOVORIN CALCIUM
     Indication: Rectal cancer
     Dosage: UNK
     Route: 065
     Dates: start: 20230927, end: 2023
  5. LEUCOVORIN [Suspect]
     Active Substance: LEUCOVORIN\LEUCOVORIN CALCIUM
     Indication: Colorectal cancer
     Dosage: UNK
     Route: 065
     Dates: start: 20231011, end: 2023
  6. LEUCOVORIN [Suspect]
     Active Substance: LEUCOVORIN\LEUCOVORIN CALCIUM
     Dosage: UNK
     Route: 065
     Dates: start: 202311
  7. FLUOROURACIL [Suspect]
     Active Substance: FLUOROURACIL
     Indication: Rectal cancer
     Dosage: UNK
     Route: 065
     Dates: start: 20230927, end: 2023
  8. FLUOROURACIL [Suspect]
     Active Substance: FLUOROURACIL
     Indication: Colorectal cancer
     Dosage: UNK
     Route: 065
     Dates: start: 20231011, end: 2023
  9. FLUOROURACIL [Suspect]
     Active Substance: FLUOROURACIL
     Dosage: UNK
     Route: 065
     Dates: start: 202311
  10. OXALIPLATIN [Suspect]
     Active Substance: OXALIPLATIN
     Indication: Rectal cancer
     Dosage: UNK
     Route: 065
     Dates: start: 2023, end: 2023
  11. OXALIPLATIN [Suspect]
     Active Substance: OXALIPLATIN
     Indication: Colorectal cancer
     Dosage: UNK
     Route: 065
     Dates: start: 20231011

REACTIONS (4)
  - Colorectal cancer [Unknown]
  - Hepatotoxicity [Unknown]
  - Skin toxicity [Unknown]
  - Therapy partial responder [Unknown]

NARRATIVE: CASE EVENT DATE: 20230101
